FAERS Safety Report 7663414-2 (Version None)
Quarter: 2011Q3

REPORT INFORMATION
  Report Type: 
  Country: None (occurrence: None)
  Receive Date: 20110805
  Receipt Date: 20101208
  Transmission Date: 20111222
  Serious: No
  Sender: FDA-Public Use
  Company Number: US-ABBOTT-10P-163-0629972-00

PATIENT
  Age: 64 Year
  Sex: Male
  Weight: 90.8 kg

DRUGS (5)
  1. ASPIRIN [Concomitant]
     Indication: PRODUCT USED FOR UNKNOWN INDICATION
  2. ZOCOR [Concomitant]
     Indication: PRODUCT USED FOR UNKNOWN INDICATION
  3. NIASPAN [Suspect]
     Indication: HIGH DENSITY LIPOPROTEIN DECREASED
     Dosage: 1/2 500MG TABLET
     Dates: start: 20091201
  4. ACIPHEX [Concomitant]
     Indication: PRODUCT USED FOR UNKNOWN INDICATION
  5. NIASPAN [Suspect]
     Indication: LOW DENSITY LIPOPROTEIN INCREASED

REACTIONS (8)
  - DYSPEPSIA [None]
  - PANCREATIC INSUFFICIENCY [None]
  - FLATULENCE [None]
  - WRONG TECHNIQUE IN DRUG USAGE PROCESS [None]
  - HELICOBACTER GASTRITIS [None]
  - DIARRHOEA [None]
  - GASTRIC DISORDER [None]
  - NAUSEA [None]
